FAERS Safety Report 8116606-2 (Version None)
Quarter: 2012Q1

REPORT INFORMATION
  Report Type: 
  Country: None (occurrence: None)
  Receive Date: 20120206
  Receipt Date: 20120124
  Transmission Date: 20120608
  Serious: Yes (Other)
  Sender: FDA-Public Use
  Company Number: PHHY2012BR006941

PATIENT
  Sex: Male
  Weight: 55 kg

DRUGS (8)
  1. SIMVASTATIN [Concomitant]
     Indication: CARDIOVASCULAR DISORDER
     Dosage: 1 TABLET AT NIGHT
  2. SOMALGIN [Concomitant]
     Dosage: 1 TABLET AFTER LUNCH
  3. ISOSORBIDE MONONITRATE [Concomitant]
     Indication: HYPERTENSION
     Dosage: 1 DF, BID
  4. ALDAZIDA [Suspect]
     Indication: HYPERTENSION
     Dosage: 1 TABLET A DAY
  5. EXFORGE [Suspect]
     Indication: HYPERTENSION
     Dosage: 1 DF (320/10MG) DAILY
     Route: 048
  6. OMEPRAZOLE [Concomitant]
     Dosage: 1 DF IN FASTING
  7. ATENOLOL [Concomitant]
     Dosage: 1 TABLET AT NIGHT
  8. PLAGREL [Concomitant]
     Dosage: 1 TABLET A DAY

REACTIONS (6)
  - RENAL VEIN OCCLUSION [None]
  - VOMITING [None]
  - MALAISE [None]
  - ASTHENIA [None]
  - ABDOMINAL PAIN [None]
  - BLOOD PRESSURE INCREASED [None]
